FAERS Safety Report 5208657-2 (Version None)
Quarter: 2007Q1

REPORT INFORMATION
  Report Type: 
  Country: None (occurrence: None)
  Receive Date: 20070116
  Receipt Date: 20070111
  Transmission Date: 20070707
  Serious: Yes (Death, Hospitalization)
  Sender: FDA-Public Use
  Company Number: PHBS2006RU19783

PATIENT
  Age: 76 Year
  Sex: Female

DRUGS (8)
  1. LAMISIL [Suspect]
     Indication: NAIL TINEA
     Dosage: 250 MG/D
     Route: 048
     Dates: start: 20040301, end: 20040401
  2. LAMISIL [Suspect]
     Dosage: 250 MG, QD
     Route: 048
     Dates: start: 20040501, end: 20040501
  3. LAMISIL [Suspect]
     Dosage: 250 MG, QD
     Route: 048
     Dates: start: 20040501, end: 20040601
  4. DIFLUCAN [Suspect]
     Indication: CANDIDIASIS
     Dosage: 150 MG, QD
     Route: 065
     Dates: start: 20031230
  5. VEROSPIRON [Concomitant]
  6. FUROSEMIDE [Concomitant]
  7. PANANGIN [Concomitant]
  8. CAVINTON [Concomitant]
     Route: 042

REACTIONS (8)
  - ACUTE MYELOID LEUKAEMIA [None]
  - ALOPECIA [None]
  - BICYTOPENIA [None]
  - BONE MARROW MYELOGRAM ABNORMAL [None]
  - DERMATITIS ALLERGIC [None]
  - GRANULOCYTOPENIA [None]
  - THROMBOCYTOPENIA [None]
  - THROMBOCYTOPENIC PURPURA [None]
